FAERS Safety Report 7131903-5 (Version None)
Quarter: 2010Q4

REPORT INFORMATION
  Report Type: 
  Country: None (occurrence: None)
  Receive Date: 20101202
  Receipt Date: 20101118
  Transmission Date: 20110411
  Serious: Yes (Other)
  Sender: FDA-Public Use
  Company Number: TR-RANBAXY-2010RR-39748

PATIENT
  Age: 27 Year
  Sex: Male

DRUGS (5)
  1. CO-TRIMOXAZOLE [Suspect]
     Indication: ENDOCARDITIS BACTERIAL
     Dosage: UNK
     Route: 048
  2. VANCOMYCIN [Suspect]
     Indication: ENDOCARDITIS
  3. XYNTABALIN [Suspect]
     Indication: ENDOCARDITIS BACTERIAL
  4. RIFAMPICIN [Suspect]
     Indication: ENDOCARDITIS
     Dosage: 600 MG, UNK
  5. DOXYCYCLINE [Suspect]
     Indication: ENDOCARDITIS BACTERIAL
     Dosage: 100 MG, BID
     Route: 048

REACTIONS (5)
  - AORTIC VALVE REPLACEMENT [None]
  - CANDIDIASIS [None]
  - LEFT VENTRICULAR FAILURE [None]
  - LEUKOCYTOSIS [None]
  - RESPIRATORY FAILURE [None]
